FAERS Safety Report 8013024-2 (Version None)
Quarter: 2011Q4

REPORT INFORMATION
  Report Type: 
  Country: None (occurrence: None)
  Receive Date: 20111229
  Receipt Date: 20111228
  Transmission Date: 20120403
  Serious: Yes (Hospitalization)
  Sender: FDA-Public Use
  Company Number: DE-AMGEN-DEUCT2011063943

PATIENT
  Age: 65 Year
  Sex: Female

DRUGS (1)
  1. ROMIPLOSTIM [Suspect]
     Indication: IDIOPATHIC THROMBOCYTOPENIC PURPURA
     Dosage: 1 MUG/KG, QWK
     Route: 058
     Dates: start: 20110825

REACTIONS (3)
  - PLATELET COUNT DECREASED [None]
  - SUBDURAL HAEMORRHAGE [None]
  - REVERSIBLE ISCHAEMIC NEUROLOGICAL DEFICIT [None]
